FAERS Safety Report 6533766-5 (Version None)
Quarter: 2010Q1

REPORT INFORMATION
  Report Type: 
  Country: None (occurrence: None)
  Receive Date: 20100111
  Receipt Date: 20090324
  Transmission Date: 20100710
  Serious: No
  Sender: FDA-Public Use
  Company Number: US-ABBOTT-09P-163-0564534-00

PATIENT
  Age: 20 Year
  Sex: Male

DRUGS (1)
  1. VICODIN [Suspect]
     Indication: BACK PAIN
     Dosage: UNKNOWN

REACTIONS (1)
  - DRUG DEPENDENCE [None]
